FAERS Safety Report 6228175-2 (Version None)
Quarter: 2009Q2

REPORT INFORMATION
  Report Type: 
  Country: None (occurrence: None)
  Receive Date: 20090610
  Receipt Date: 20090610
  Transmission Date: 20091009
  Serious: Yes (Other)
  Sender: FDA-Public Use
  Company Number: None

PATIENT
  Age: 40 Year
  Sex: Female
  Weight: 68.4932 kg

DRUGS (1)
  1. MONISTAT [Suspect]
     Indication: VULVOVAGINAL MYCOTIC INFECTION
     Dosage: 1 DOSE ONCE
     Dates: start: 20090607, end: 20090607

REACTIONS (5)
  - BURNING SENSATION [None]
  - DISCOMFORT [None]
  - PAIN [None]
  - PRODUCT QUALITY ISSUE [None]
  - SWELLING [None]
